FAERS Safety Report 15110905 (Version 1)
Quarter: 2018Q2

REPORT INFORMATION
  Report Type: Spontaneous
  Country: US (occurrence: US)
  Receive Date: 20180612
  Receipt Date: 20180612
  Transmission Date: 20180711
  Serious: Yes (Hospitalization)
  Sender: FDA-Public Use
  Company Number: None

PATIENT
  Age: 55 Year
  Sex: Male

DRUGS (12)
  1. TOPIRAMATE. [Concomitant]
     Active Substance: TOPIRAMATE
     Dates: start: 20180414
  2. METOPROLOL TARTRATE. [Concomitant]
     Active Substance: METOPROLOL TARTRATE
     Dates: start: 20180208
  3. METFORMIN [Concomitant]
     Active Substance: METFORMIN HYDROCHLORIDE
     Dates: start: 20180211
  4. VENLAFAXINE [Concomitant]
     Active Substance: VENLAFAXINE HYDROCHLORIDE
     Dates: start: 20180504
  5. HUMIRA [Suspect]
     Active Substance: ADALIMUMAB
     Indication: RHEUMATOID ARTHRITIS
     Dosage: ?          OTHER FREQUENCY:ONCE EVERY 10 DAYS;?
     Route: 058
     Dates: start: 20171003
  6. TRAMADOL. [Concomitant]
     Active Substance: TRAMADOL
     Dates: start: 20180414
  7. AMLOD/BENAZP [Concomitant]
     Dates: start: 20171222
  8. FOLIC ACID. [Concomitant]
     Active Substance: FOLIC ACID
     Dates: start: 20180328
  9. HYDRXYCHLOR [Concomitant]
     Dates: start: 20170803
  10. OMEPRAZOLE. [Concomitant]
     Active Substance: OMEPRAZOLE
     Dates: start: 20180211
  11. TIZANIDINE. [Concomitant]
     Active Substance: TIZANIDINE
     Dates: start: 20180414
  12. METHOTREXATE. [Concomitant]
     Active Substance: METHOTREXATE
     Dates: start: 20170803

REACTIONS (6)
  - Systemic lupus erythematosus [None]
  - Pain [None]
  - Lumbar spinal stenosis [None]
  - Migraine [None]
  - Osteoarthritis [None]
  - Peripheral swelling [None]
